FAERS Safety Report 17416600 (Version 4)
Quarter: 2022Q2

REPORT INFORMATION
  Report Type: Report from Study
  Country: US (occurrence: US)
  Receive Date: 20200214
  Receipt Date: 20220405
  Transmission Date: 20220721
  Serious: No
  Sender: FDA-Public Use
  Company Number: US-SA-2020SA038463

PATIENT
  Age: 68 Year
  Sex: Female

DRUGS (1)
  1. DUPIXENT [Suspect]
     Active Substance: DUPILUMAB
     Indication: Dermatitis atopic
     Dosage: 300 MG, QOW
     Route: 058

REACTIONS (7)
  - Carpal tunnel syndrome [Unknown]
  - Pruritus [Unknown]
  - Product use issue [Unknown]
  - Injection site pain [Unknown]
  - Neuralgia [Unknown]
  - Nerve compression [Unknown]
  - Fear of injection [Unknown]
